FAERS Safety Report 20139980 (Version 1)
Quarter: 2021Q4

REPORT INFORMATION
  Report Type: Report from Study
  Country: KE (occurrence: KE)
  Receive Date: 20211202
  Receipt Date: 20211202
  Transmission Date: 20220303
  Serious: Yes (Death)
  Sender: FDA-Public Use
  Company Number: KE-PFIZER INC-202101667010

PATIENT
  Age: 73 Year
  Sex: Male

DRUGS (1)
  1. SUTENT [Suspect]
     Active Substance: SUNITINIB MALATE
     Indication: Gastrointestinal stromal tumour
     Dosage: 50MG (1 X 50MG CAPSULE)

REACTIONS (1)
  - Death [Fatal]
